FAERS Safety Report 14551529 (Version 1)
Quarter: 2018Q1

REPORT INFORMATION
  Report Type: Spontaneous
  Country: US (occurrence: US)
  Receive Date: 20180220
  Receipt Date: 20180220
  Transmission Date: 20180509
  Serious: No
  Sender: FDA-Public Use
  Company Number: US-ASTRAZENECA-2018SE15479

PATIENT
  Sex: Female
  Weight: 64.4 kg

DRUGS (2)
  1. ASPIRIN. [Concomitant]
     Active Substance: ASPIRIN
     Route: 065
  2. BRILINTA [Suspect]
     Active Substance: TICAGRELOR
     Indication: STENT PLACEMENT
     Route: 048
     Dates: start: 20120710

REACTIONS (5)
  - Chest discomfort [Unknown]
  - Cerebral congestion [Unknown]
  - Drug dose omission [Unknown]
  - Off label use [Unknown]
  - Inappropriate schedule of drug administration [Unknown]
